FAERS Safety Report 15334600 (Version 1)
Quarter: 2018Q3

REPORT INFORMATION
  Report Type: Report from Study
  Country: GB (occurrence: GB)
  Receive Date: 20180830
  Receipt Date: 20180830
  Transmission Date: 20181010
  Serious: Yes (Other)
  Sender: FDA-Public Use
  Company Number: GB-EMD SERONO-8078922

PATIENT
  Age: 62 Year
  Sex: Male

DRUGS (2)
  1. SAIZEN [Suspect]
     Active Substance: SOMATROPIN
     Indication: GROWTH HORMONE DEFICIENCY
     Route: 058
     Dates: start: 20090825
  2. SAIZEN [Suspect]
     Active Substance: SOMATROPIN
     Indication: BONE DISORDER

REACTIONS (5)
  - Asthenia [Unknown]
  - Off label use [Unknown]
  - Diabetes mellitus [Unknown]
  - Fatigue [Unknown]
  - Drug dose omission [Unknown]

NARRATIVE: CASE EVENT DATE: 20090825
